FAERS Safety Report 16218635 (Version 1)
Quarter: 2019Q2

REPORT INFORMATION
  Report Type: Report from Study
  Country: FR (occurrence: FR)
  Receive Date: 20190419
  Receipt Date: 20190419
  Transmission Date: 20190711
  Serious: Yes (Other)
  Sender: FDA-Public Use
  Company Number: FR-BAUSCH-BL-2019-011048

PATIENT
  Sex: Female
  Weight: 28 kg

DRUGS (7)
  1. LUXTURNA [Suspect]
     Active Substance: VORETIGENE NEPARVOVEC-RZYL
     Indication: RETINITIS PIGMENTOSA
     Dosage: ONCE
     Route: 050
     Dates: start: 20190206, end: 20190206
  2. PREDNISOLONE. [Suspect]
     Active Substance: PREDNISOLONE
     Route: 048
     Dates: start: 20190217, end: 20190226
  3. PREDNISOLONE. [Suspect]
     Active Substance: PREDNISOLONE
     Indication: PROPHYLAXIS
     Route: 048
     Dates: start: 20190203, end: 20190216
  4. LUXTURNA [Suspect]
     Active Substance: VORETIGENE NEPARVOVEC-RZYL
     Dosage: ONCE
     Route: 050
     Dates: start: 20190213, end: 20190213
  5. IMIPENEM [Concomitant]
     Active Substance: IMIPENEM
     Indication: PROPHYLAXIS
     Route: 042
     Dates: start: 20190213, end: 20190213
  6. PREDNISONE. [Concomitant]
     Active Substance: PREDNISONE
     Indication: PROPHYLAXIS
     Route: 048
     Dates: start: 20190203
  7. TOBRADEX [Concomitant]
     Active Substance: DEXAMETHASONE\TOBRAMYCIN
     Indication: PROPHYLAXIS
     Route: 047
     Dates: start: 20190219, end: 20190222

REACTIONS (4)
  - Face oedema [Unknown]
  - Cataract [Recovered/Resolved]
  - Cataract [Recovered/Resolved]
  - Intraocular pressure decreased [Recovered/Resolved]

NARRATIVE: CASE EVENT DATE: 20190207
